FAERS Safety Report 8699365 (Version 2)
Quarter: 2013Q3

REPORT INFORMATION
  Report Type: Spontaneous
  Country: US (occurrence: US)
  Receive Date: 20120802
  Receipt Date: 20130729
  Transmission Date: 20140515
  Serious: Yes (Hospitalization)
  Sender: FDA-Public Use
  Company Number: US-TEVA-350730USA

PATIENT
  Sex: Male

DRUGS (2)
  1. NUVIGIL [Suspect]
     Indication: SLEEP APNOEA SYNDROME
     Route: 048
     Dates: start: 2012, end: 20120727
  2. BENICAR [Concomitant]

REACTIONS (4)
  - Oral pain [Unknown]
  - Gastrointestinal disorder [Unknown]
  - Constipation [Unknown]
  - Dysgeusia [Unknown]
